FAERS Safety Report 20045014 (Version 1)
Quarter: 2021Q4

REPORT INFORMATION
  Report Type: Spontaneous
  Country: FR (occurrence: FR)
  Receive Date: 20211108
  Receipt Date: 20211108
  Transmission Date: 20220303
  Serious: Yes (Hospitalization, Congenital Anomaly, Other)
  Sender: FDA-Public Use
  Company Number: FR-ABBVIE-21K-056-4145679-00

PATIENT

DRUGS (6)
  1. VALPROATE SODIUM [Suspect]
     Active Substance: VALPROATE SODIUM
     Indication: Maternal exposure timing unspecified
     Route: 064
  2. FOLIC ACID [Concomitant]
     Active Substance: FOLIC ACID
     Indication: Maternal exposure timing unspecified
     Route: 064
  3. VITAMIN K [Concomitant]
     Active Substance: PHYTONADIONE
     Indication: Maternal exposure timing unspecified
     Route: 064
  4. FERROUS SULFATE [Concomitant]
     Active Substance: FERROUS SULFATE
     Indication: Maternal exposure timing unspecified
     Route: 064
  5. VITAMIN K [Concomitant]
     Active Substance: PHYTONADIONE
     Indication: Maternal exposure timing unspecified
     Route: 064
  6. LEUCOVORIN CALCIUM [Concomitant]
     Active Substance: LEUCOVORIN CALCIUM
     Indication: Maternal exposure timing unspecified
     Route: 064

REACTIONS (85)
  - Peritonitis [Unknown]
  - Brachydactyly [Unknown]
  - Congenital musculoskeletal anomaly [Unknown]
  - Talipes [Unknown]
  - Dysmorphism [Unknown]
  - Foetal anticonvulsant syndrome [Unknown]
  - Syndactyly [Unknown]
  - Congenital hand malformation [Unknown]
  - Hypoglycaemia [Unknown]
  - Arachnodactyly [Unknown]
  - Clavicle fracture [Unknown]
  - Benign enlargement of the subarachnoid spaces [Unknown]
  - Hypertelorism [Unknown]
  - Constipation [Unknown]
  - Stereotypy [Unknown]
  - Limb malformation [Unknown]
  - Skull malformation [Unknown]
  - Bronchiolitis [Unknown]
  - Angina pectoris [Unknown]
  - Intestinal obstruction [Unknown]
  - Intentional self-injury [Unknown]
  - Knee deformity [Unknown]
  - Intellectual disability [Unknown]
  - Intellectual disability [Unknown]
  - Foot deformity [Unknown]
  - Kyphosis [Unknown]
  - Audiogram abnormal [Unknown]
  - Scoliosis [Unknown]
  - Balance disorder [Unknown]
  - Mobility decreased [Unknown]
  - Mobility decreased [Unknown]
  - Nipple enlargement [Unknown]
  - Enuresis [Unknown]
  - Psychomotor retardation [Unknown]
  - Coordination abnormal [Unknown]
  - Cerebral ventricle dilatation [Unknown]
  - Disturbance in attention [Unknown]
  - Learning disorder [Unknown]
  - Trichotillomania [Unknown]
  - Obsessive-compulsive disorder [Unknown]
  - Psychomotor skills impaired [Unknown]
  - Aphasia [Unknown]
  - Behaviour disorder [Unknown]
  - Sleep disorder [Unknown]
  - Impulsive behaviour [Unknown]
  - Hypertrichosis [Unknown]
  - Speech disorder developmental [Unknown]
  - Speech disorder developmental [Unknown]
  - Autism spectrum disorder [Unknown]
  - Anxiety [Unknown]
  - Binge eating [Unknown]
  - Bulimia nervosa [Unknown]
  - Bulimia nervosa [Unknown]
  - Nasopharyngitis [Unknown]
  - Laryngitis [Unknown]
  - Tracheitis [Unknown]
  - Educational problem [Unknown]
  - Frustration tolerance decreased [Unknown]
  - Personal relationship issue [Unknown]
  - Anger [Unknown]
  - Screaming [Unknown]
  - Balance disorder [Unknown]
  - Astigmatism [Unknown]
  - Hypermetropia [Unknown]
  - Myopia [Unknown]
  - Ear infection [Unknown]
  - Pain in extremity [Unknown]
  - Rhinitis [Unknown]
  - Parapsoriasis [Unknown]
  - Cough [Unknown]
  - Visual impairment [Unknown]
  - Guttate psoriasis [Unknown]
  - Tympanic membrane disorder [Unknown]
  - Eczema [Unknown]
  - Allergy to plants [Unknown]
  - Mite allergy [Unknown]
  - Musculoskeletal stiffness [Unknown]
  - Otitis media [Unknown]
  - Skin depigmentation [Unknown]
  - Jaw disorder [Unknown]
  - Weight increased [Unknown]
  - Decreased appetite [Unknown]
  - Headache [Unknown]
  - Pain [Unknown]
  - Foetal exposure during pregnancy [Unknown]

NARRATIVE: CASE EVENT DATE: 20020101
